FAERS Safety Report 10457852 (Version 1)
Quarter: 2014Q3

REPORT INFORMATION
  Report Type: Spontaneous
  Country: US (occurrence: US)
  Receive Date: 20140916
  Receipt Date: 20140916
  Transmission Date: 20150326
  Serious: Yes (Hospitalization)
  Sender: FDA-Public Use
  Company Number: US-ACTELION-A-NJ2014-104955

PATIENT
  Age: 2 Month
  Sex: Female

DRUGS (4)
  1. TRACLEER [Suspect]
     Active Substance: BOSENTAN\BOSENTAN MONOHYDRATE
     Dosage: 6.25 MG, BID
     Route: 048
     Dates: start: 20140731
  2. SILDENAFIL [Concomitant]
     Active Substance: SILDENAFIL
  3. TRACLEER [Suspect]
     Active Substance: BOSENTAN\BOSENTAN MONOHYDRATE
     Indication: PULMONARY ARTERIAL HYPERTENSION
     Dosage: 4.625 MG, BID
     Route: 048
     Dates: start: 20140603, end: 20140730
  4. ADCIRCA [Concomitant]
     Active Substance: TADALAFIL

REACTIONS (3)
  - Mechanical ventilation [Recovering/Resolving]
  - Pulmonary arterial hypertension [Recovering/Resolving]
  - Tracheostomy [Recovering/Resolving]
